FAERS Safety Report 8548334-3 (Version None)
Quarter: 2012Q3

REPORT INFORMATION
  Report Type: 
  Country: None (occurrence: None)
  Receive Date: 20120719
  Receipt Date: 20120719
  Transmission Date: 20120928
  Serious: Yes (Other)
  Sender: FDA-Public Use
  Company Number: None

PATIENT
  Age: 76 Year
  Sex: Male
  Weight: 61.6892 kg

DRUGS (1)
  1. SYNTHROID [Suspect]
     Indication: THYROID DISORDER
     Dosage: 50 MCG # 30 ONE DAILY

REACTIONS (3)
  - DIARRHOEA [None]
  - CONSTIPATION [None]
  - WEIGHT ABNORMAL [None]
